FAERS Safety Report 7278668-4 (Version None)
Quarter: 2011Q1

REPORT INFORMATION
  Report Type: 
  Country: None (occurrence: None)
  Receive Date: 20110207
  Receipt Date: 20110202
  Transmission Date: 20110831
  Serious: No
  Sender: FDA-Public Use
  Company Number: US-PFIZER INC-2011024186

PATIENT
  Sex: Female
  Weight: 50.794 kg

DRUGS (2)
  1. ADVIL CONGESTION RELIEF [Suspect]
     Indication: RESPIRATORY TRACT CONGESTION
     Dosage: UNK
     Route: 048
     Dates: start: 20110101, end: 20110202
  2. ETHANOL [Suspect]
     Dosage: UNK

REACTIONS (2)
  - DYSPNOEA [None]
  - CHEST PAIN [None]
